FAERS Safety Report 6604036-1 (Version None)
Quarter: 2010Q1

REPORT INFORMATION
  Report Type: 
  Country: None (occurrence: None)
  Receive Date: 20100226
  Receipt Date: 20090813
  Transmission Date: 20100710
  Serious: No
  Sender: FDA-Public Use
  Company Number: A0779931A

PATIENT
  Age: 19 Year
  Sex: Female

DRUGS (3)
  1. LAMICTAL CD [Suspect]
     Dosage: 100MG PER DAY
     Route: 048
     Dates: start: 20090109
  2. CELEXA [Concomitant]
  3. BUSPAR [Concomitant]

REACTIONS (3)
  - ABORTION INDUCED [None]
  - DIZZINESS [None]
  - DRUG EXPOSURE DURING PREGNANCY [None]
